FAERS Safety Report 4492116-9 (Version None)
Quarter: 2004Q4

REPORT INFORMATION
  Report Type: 
  Country: None (occurrence: None)
  Receive Date: 20041101
  Receipt Date: 20041021
  Transmission Date: 20050328
  Serious: Yes (Hospitalization, Disabling)
  Sender: FDA-Public Use
  Company Number: 2004240678US

PATIENT
  Age: 44 Year
  Sex: Female
  Weight: 96.6 kg

DRUGS (20)
  1. ELLENCE [Suspect]
     Indication: BREAST CANCER STAGE III
     Dosage: 35 MG, CYCLE,3, EVERY 3 WKS, IV
     Route: 042
  2. COMPARATOR -DOCETAXEL (DOCETAXEL)INJECTION [Suspect]
     Indication: BREAST CANCER STAGE III
     Dosage: SEE IMAGE
     Route: 048
     Dates: start: 20040916, end: 20040916
  3. COMPARATOR -DOCETAXEL (DOCETAXEL)INJECTION [Suspect]
     Indication: BREAST CANCER STAGE III
     Dosage: SEE IMAGE
     Route: 048
     Dates: start: 20040830, end: 20041018
  4. DEXAMETHASONE [Concomitant]
  5. WELLBUTRIN [Concomitant]
  6. COUMADIN [Concomitant]
  7. DIFLUCAN [Concomitant]
  8. COMPAZINE (PROCHLOPERAZINE EDISYLATE) [Concomitant]
  9. AMBIEN [Concomitant]
  10. IMODIUM [Concomitant]
  11. LIPITOR [Concomitant]
  12. LEXAPRO [Concomitant]
  13. LORAZEPAM [Concomitant]
  14. EMLA (PRILOCAINE) [Concomitant]
  15. MORPHINE SULFATE [Concomitant]
  16. ALBUTEROL (SABUTAMOL) [Concomitant]
  17. ZYRTEC [Concomitant]
  18. COMPARATOR- CAPCITABINE [Suspect]
     Indication: BREAST CANCER STAGE III
     Dosage: 2500MG.QD ORAL
     Route: 048
  19. COMPARATOR-CYCLOPHOSPHAMIDE [Suspect]
  20. CONPARATOR -FLORORUACIL [Suspect]

REACTIONS (4)
  - ABASIA [None]
  - OEDEMA [None]
  - PAIN [None]
  - PALMAR-PLANTAR ERYTHRODYSAESTHESIA SYNDROME [None]
